FAERS Safety Report 7518631-9 (Version None)
Quarter: 2011Q2

REPORT INFORMATION
  Report Type: 
  Country: None (occurrence: None)
  Receive Date: 20110512
  Receipt Date: 20110322
  Transmission Date: 20111010
  Serious: No
  Sender: FDA-Public Use
  Company Number: 1000019399

PATIENT
  Age: 25 Year
  Sex: Female

DRUGS (4)
  1. VALIUM [Concomitant]
  2. DILAUDID (HYDROMORPHONE HYDROCHLORIDE) (HYDROMORPHONE HYDROCHLORIDE) [Concomitant]
  3. SAVELLA [Suspect]
     Indication: FIBROMYALGIA
     Dosage: 12.5 MG (12.5 MG, 2 IN 1 D), ORAL 25 MG BID (25 MG, 2 IN 1 D), ORAL 50 MG BID (50 MG, 2 IN 1 D), ORA
     Route: 048
     Dates: start: 20110201, end: 20110201
  4. SAVELLA [Suspect]
     Indication: FIBROMYALGIA
     Dosage: 12.5 MG (12.5 MG, 2 IN 1 D), ORAL 25 MG BID (25 MG, 2 IN 1 D), ORAL 50 MG BID (50 MG, 2 IN 1 D), ORA
     Route: 048
     Dates: start: 20110201

REACTIONS (2)
  - ANXIETY [None]
  - NERVOUSNESS [None]
